FAERS Safety Report 4880030-6 (Version None)
Quarter: 2006Q1

REPORT INFORMATION
  Report Type: 
  Country: None (occurrence: None)
  Receive Date: 20060111
  Receipt Date: 20051010
  Transmission Date: 20060701
  Serious: No
  Sender: FDA-Public Use
  Company Number: 2005S1000216

PATIENT
  Age: 68 Year
  Weight: 133 kg

DRUGS (32)
  1. CUBICIN [Suspect]
     Indication: BACTERAEMIA
     Dosage: 500 MG;Q48H;IV
     Route: 042
     Dates: start: 20050930, end: 20051008
  2. CUBICIN [Suspect]
     Indication: CELLULITIS
     Dosage: 500 MG;Q48H;IV
     Route: 042
     Dates: start: 20050930, end: 20051008
  3. CUBICIN [Suspect]
  4. LOVASTATIN [Concomitant]
  5. CLONAZEPAM [Concomitant]
  6. IRBESARTAN [Concomitant]
  7. FENTANYL CITRATE [Concomitant]
  8. HEPARIN SODIUM [Concomitant]
  9. SERTRALINE [Concomitant]
  10. NYSTATIN [Concomitant]
  11. PRAMIPEXOLE DIHYDROCHLORIDE [Concomitant]
  12. CEFEPIME [Concomitant]
  13. PENTOXIFYLLINE [Concomitant]
  14. PANTOPRAZOLE [Concomitant]
  15. METOLAZONE [Concomitant]
  16. ALLOPURINOL [Concomitant]
  17. DARBEPOETIN ALFA [Concomitant]
  18. SEVELAMER [Concomitant]
  19. PNEUMOCOCCAL VACCINE [Concomitant]
  20. INFLUENZA VIRUS VACCINE POLYVALENT [Concomitant]
  21. POTASSIUM CHLORIDE [Concomitant]
  22. INSULIN [Concomitant]
  23. HYDROCODONE [Concomitant]
  24. DIPHENHYDRAMINE [Concomitant]
  25. DOCUSATE SODIUM [Concomitant]
  26. SENNA [Concomitant]
  27. MAGNESIUM OXIDE [Concomitant]
  28. NIACIN [Concomitant]
  29. SULFDIAZINE SILVER [Concomitant]
  30. VANCOMYCIN [Concomitant]
  31. CEFTAZIDIME [Concomitant]
  32. RASH CREAM [Concomitant]

REACTIONS (1)
  - EOSINOPHILIA [None]
